FAERS Safety Report 22218577 (Version 1)
Quarter: 2023Q2

REPORT INFORMATION
  Report Type: Spontaneous
  Country: None (occurrence: CN)
  Receive Date: 20230417
  Receipt Date: 20230417
  Transmission Date: 20230722
  Serious: Yes (Hospitalization)
  Sender: FDA-Public Use
  Company Number: CN-ACIC Fine Chemicals Inc-2140453

PATIENT
  Age: 33 Year
  Sex: Female

DRUGS (3)
  1. TRANEXAMIC ACID [Suspect]
     Active Substance: TRANEXAMIC ACID
     Route: 023
  2. HYALURONIC ACID [Concomitant]
     Active Substance: HYALURONIC ACID
     Route: 023
  3. VITAMIN C [Concomitant]
     Active Substance: ASCORBIC ACID
     Route: 023

REACTIONS (5)
  - Foreign body reaction [Recovering/Resolving]
  - Swelling [Recovered/Resolved]
  - Injection site pain [Recovered/Resolved]
  - Erythema [Recovered/Resolved]
  - Incorrect route of product administration [Unknown]
